FAERS Safety Report 19513439 (Version 1)
Quarter: 2021Q3

REPORT INFORMATION
  Report Type: Spontaneous
  Country: IT (occurrence: IT)
  Receive Date: 20210709
  Receipt Date: 20210709
  Transmission Date: 20211014
  Serious: Yes (Hospitalization)
  Sender: FDA-Public Use
  Company Number: IT-MYLANLABS-2021M1039302

PATIENT
  Age: 42 Year
  Sex: Male

DRUGS (1)
  1. REPAGLINIDE MYLAN [Suspect]
     Active Substance: REPAGLINIDE
     Indication: PRODUCT USED FOR UNKNOWN INDICATION
     Dosage: 3 DOSAGE FORM, TOTAL
     Route: 048
     Dates: start: 20210109, end: 20210109

REACTIONS (3)
  - Hypoglycaemia [Unknown]
  - Medication error [Unknown]
  - Syncope [Unknown]

NARRATIVE: CASE EVENT DATE: 20210109
